FAERS Safety Report 23414352 (Version 3)
Quarter: 2024Q4

REPORT INFORMATION
  Report Type: Report from Study
  Country: GB (occurrence: GB)
  Receive Date: 20240118
  Receipt Date: 20241202
  Transmission Date: 20250115
  Serious: Yes (Other)
  Sender: ROCHE
  Company Number: GB-ROCHE-3459522

PATIENT
  Sex: Female

DRUGS (2)
  1. TOCILIZUMAB [Suspect]
     Active Substance: TOCILIZUMAB
     Indication: Rheumatoid arthritis
     Route: 058
     Dates: start: 202306
  2. LEVOTHYROXINE [Concomitant]
     Active Substance: LEVOTHYROXINE

REACTIONS (7)
  - Conjunctivitis [Unknown]
  - Malaise [Unknown]
  - Maternal exposure timing unspecified [Unknown]
  - Abortion spontaneous [Unknown]
  - Off label use [Unknown]
  - Feeling abnormal [Not Recovered/Not Resolved]
  - Influenza like illness [Recovering/Resolving]
